FAERS Safety Report 4404471-6 (Version None)
Quarter: 2004Q3

REPORT INFORMATION
  Report Type: 
  Country: None (occurrence: None)
  Receive Date: 20040720
  Receipt Date: 20040706
  Transmission Date: 20050211
  Serious: Yes (Hospitalization, Other)
  Sender: FDA-Public Use
  Company Number: US-JNJFOC-20040302294

PATIENT
  Age: 57 Year
  Sex: Female
  Weight: 90.7194 kg

DRUGS (29)
  1. TOPAMAX [Suspect]
     Indication: MIGRAINE
     Dosage: 150 MG, IN 1 DAY, ORAL  SEE IMAGE
     Route: 048
     Dates: start: 20020101, end: 20020101
  2. TOPAMAX [Suspect]
     Indication: MIGRAINE
     Dosage: 150 MG, IN 1 DAY, ORAL  SEE IMAGE
     Route: 048
     Dates: start: 20020101, end: 20020101
  3. TOPAMAX [Suspect]
     Indication: MIGRAINE
     Dosage: 150 MG, IN 1 DAY, ORAL  SEE IMAGE
     Route: 048
     Dates: start: 20020101, end: 20020101
  4. TOPAMAX [Suspect]
     Indication: MIGRAINE
     Dosage: 150 MG, IN 1 DAY, ORAL  SEE IMAGE
     Route: 048
     Dates: start: 20020601
  5. TOPAMAX [Suspect]
     Indication: MIGRAINE
     Dosage: 150 MG, IN 1 DAY, ORAL  SEE IMAGE
     Route: 048
     Dates: start: 20030302
  6. ATENOLOL [Concomitant]
  7. CARDIZEM [Concomitant]
  8. LEXAPRO [Concomitant]
  9. ZOCOR [Concomitant]
  10. VIOXX [Concomitant]
  11. PREVACID [Concomitant]
  12. IBUPROFEN [Concomitant]
  13. INDOMETHACIN [Concomitant]
  14. OMEPRAZOLE [Concomitant]
  15. MECLIZINE [Concomitant]
  16. SEROQUEL [Concomitant]
  17. CELEXA [Concomitant]
  18. XANAX [Concomitant]
  19. VIOXX [Concomitant]
  20. FOSAMAX [Concomitant]
  21. LEXAPRO [Concomitant]
  22. NYSTATIN [Concomitant]
  23. ASPIRIN [Concomitant]
  24. MULTIVITAMIN (MULTIVITAMINS) [Concomitant]
  25. CARAFATE [Concomitant]
  26. LORTAB [Concomitant]
  27. ATROVENT [Concomitant]
  28. NITROSTAT [Concomitant]
  29. INDERAL [Concomitant]

REACTIONS (15)
  - ADRENAL ADENOMA [None]
  - ASTHENIA [None]
  - BACK PAIN [None]
  - CEREBROVASCULAR ACCIDENT [None]
  - CHRONIC OBSTRUCTIVE AIRWAYS DISEASE EXACERBATED [None]
  - FALL [None]
  - GANGLION [None]
  - GRIP STRENGTH DECREASED [None]
  - HYPERHIDROSIS [None]
  - HYPOREFLEXIA [None]
  - INTERVERTEBRAL DISC DISORDER [None]
  - LUMBAR SPINAL STENOSIS [None]
  - PHYSICAL EXAMINATION ABNORMAL [None]
  - PNEUMONIA [None]
  - STATUS ASTHMATICUS [None]
